FAERS Safety Report 9204126 (Version 2)
Quarter: 2013Q2

REPORT INFORMATION
  Report Type: Spontaneous
  Country: None (occurrence: None)
  Receive Date: 20130329
  Receipt Date: 20130506
  Transmission Date: 20140414
  Serious: Yes (Hospitalization)
  Sender: FDA-Public Use
  Company Number: 2013PL000052

PATIENT
  Age: 82 Year
  Sex: Female

DRUGS (8)
  1. LOTRONEX [Suspect]
     Indication: IRRITABLE BOWEL SYNDROME
     Dates: start: 20130123, end: 20130214
  2. DILTIAZEM [Concomitant]
  3. LOSARTAN [Concomitant]
  4. MECLOZINE [Concomitant]
  5. PRAVASTATIN [Concomitant]
  6. TYLENOL [Concomitant]
  7. ALIGN [Concomitant]
  8. XIFAXAN [Concomitant]

REACTIONS (9)
  - Asthenia [None]
  - Abdominal pain [None]
  - Dehydration [None]
  - Colitis [None]
  - Ileus [None]
  - Hiatus hernia [None]
  - Colitis microscopic [None]
  - Colitis ischaemic [None]
  - Small intestinal bacterial overgrowth [None]
